FAERS Safety Report 24464198 (Version 1)
Quarter: 2024Q4

REPORT INFORMATION
  Report Type: Report from Study
  Country: US (occurrence: US)
  Receive Date: 20241018
  Receipt Date: 20241018
  Transmission Date: 20250115
  Serious: No
  Sender: ROCHE
  Company Number: US-ROCHE-3352327

PATIENT
  Age: 26 Year
  Sex: Female
  Weight: 99.8 kg

DRUGS (23)
  1. XOLAIR [Suspect]
     Active Substance: OMALIZUMAB
     Indication: Chronic spontaneous urticaria
     Dosage: LAST XOLAIR DOSE WAS 12/AUG/2022.
     Route: 058
  2. XOLAIR [Suspect]
     Active Substance: OMALIZUMAB
     Indication: Angioedema
  3. PEPCID [Concomitant]
     Active Substance: FAMOTIDINE
  4. ZYRTEC [Concomitant]
     Active Substance: CETIRIZINE HYDROCHLORIDE
     Dosage: TAKE 2 TABLET BY MOUTH TIME DAILY
     Route: 048
  5. BENADRYL [Concomitant]
     Active Substance: DIPHENHYDRAMINE HYDROCHLORIDE
  6. ALLEGRA [Concomitant]
     Active Substance: FEXOFENADINE HYDROCHLORIDE
     Dosage: FREQUENCY TEXT:DAILY
     Dates: start: 20230511
  7. DOXEPIN [Concomitant]
     Active Substance: DOXEPIN
  8. PROVENTIL [Concomitant]
     Active Substance: ALBUTEROL
     Dosage: INHALE 2 PUFF INTO LUNG EVERY 4 HOURS AS NEEDED
     Dates: start: 20220606, end: 20230512
  9. VENTOLIN [Concomitant]
     Active Substance: ALBUTEROL SULFATE
     Dosage: INHALE 2 PUFF INTO LUNG EVERY 4 HOURS AS NEEDED
     Dates: start: 20220606, end: 20230512
  10. VITAMIN D3 [Concomitant]
     Active Substance: CHOLECALCIFEROL
     Route: 048
  11. EPIPEN [Concomitant]
     Active Substance: EPINEPHRINE
     Dosage: INJECT 0.3 ML INTO MUSCLE ONCE AS NEEDED
     Dates: start: 20230510
  12. PEPCID [Concomitant]
     Active Substance: FAMOTIDINE
     Dosage: TAKE 1 TABLET BY MOUTH 2 TIME DAILY
     Route: 048
     Dates: start: 20230511
  13. FLONASE [Concomitant]
     Active Substance: FLUTICASONE PROPIONATE
     Dosage: SPRAY 1 SPRAY INTO NARE DAILY NASAL ??STOP DATE: 07/NOV/2023? FREQUENCY TEXT:11/MAY/2023
  14. INSULIN ASPART [Concomitant]
     Active Substance: INSULIN ASPART
     Dosage: BY CONTINUES SUB-Q INFUSION ROUTE CONTINUOUSLY
     Dates: start: 20230324
  15. SYNTHROID [Concomitant]
     Active Substance: LEVOTHYROXINE SODIUM
     Dosage: STOP DATE 07/JUL/2023
     Route: 048
     Dates: start: 20230508
  16. FLOXIN [Concomitant]
     Active Substance: OFLOXACIN
     Dosage: PLACE 5 DROP INTO BOTH EAR AS NEEDED BOTH EAR
     Dates: start: 20220925, end: 20230512
  17. INDERAL [Concomitant]
     Active Substance: PROPRANOLOL HYDROCHLORIDE
     Route: 048
     Dates: start: 20230127, end: 20230512
  18. UBRELVY [Concomitant]
     Active Substance: UBROGEPANT
     Dosage: TAKEN ONSET HEADACH CAN REPEAT IN 2 HOURS IF NEEDED MAX 2 TAB
     Dates: start: 20230228, end: 20230512
  19. ADDERALL [Concomitant]
     Active Substance: AMPHETAMINE ASPARTATE\AMPHETAMINE SULFATE\DEXTROAMPHETAMINE SACCHARATE\DEXTROAMPHETAMINE SULFATE
     Dosage: 24 MG 14 HOURS CAPSULE TAKE 2 CAPSULE BY MOUTH
  20. EUTHYROX [Concomitant]
     Active Substance: LEVOTHYROXINE SODIUM
     Route: 048
  21. DESYREL [Concomitant]
     Active Substance: TRAZODONE HYDROCHLORIDE
     Dosage: TAKE 2 TABLET BY MOUTH AT BEDTIME
  22. KENALOG [Concomitant]
     Active Substance: TRIAMCINOLONE ACETONIDE
     Dosage: 0.1 % CREAM TOPICALLY 2 TIME A DAY
  23. UBRELVY [Concomitant]
     Active Substance: UBROGEPANT
     Indication: Headache
     Dosage: TAKE AT ONSET OF HEADACHE CAN REPEAT IN 2 HOURS IF NEEDED

REACTIONS (4)
  - Maternal exposure before pregnancy [Unknown]
  - Swelling [Unknown]
  - Neoplasm [Unknown]
  - Blood thyroid stimulating hormone increased [Unknown]
